FAERS Safety Report 9972254 (Version 2)
Quarter: 2014Q2

REPORT INFORMATION
  Report Type: Spontaneous
  Country: US (occurrence: US)
  Receive Date: 20140306
  Receipt Date: 20140410
  Transmission Date: 20141212
  Serious: No
  Sender: FDA-Public Use
  Company Number: US-009507513-1403USA001775

PATIENT
  Sex: Female

DRUGS (3)
  1. NUVARING [Suspect]
     Indication: CONTRACEPTION
     Dosage: 1 RING FOR 3 WEEKS EVERY MONTH
     Route: 067
     Dates: start: 201202
  2. NUVARING [Suspect]
     Dosage: UNK
  3. MONISTAT [Concomitant]
     Indication: FUNGAL INFECTION
     Dosage: UNK

REACTIONS (2)
  - Device breakage [Recovered/Resolved]
  - Product quality issue [Unknown]
